FAERS Safety Report 13656072 (Version 3)
Quarter: 2020Q1

REPORT INFORMATION
  Report Type: Other
  Country: CA (occurrence: CA)
  Receive Date: 20170615
  Receipt Date: 20200127
  Transmission Date: 20200409
  Serious: Yes (Other)
  Sender: FDA-Public Use
  Company Number: CA-LUPIN PHARMACEUTICALS INC.-2017-02935

PATIENT
  Age: 18 Year
  Sex: Female
  Weight: 66 kg

DRUGS (2)
  1. NORETHINDRONE TABLETS [Suspect]
     Active Substance: NORETHINDRONE
     Indication: DYSMENORRHOEA
     Dosage: UNK
     Route: 065
  2. NORETHINDRONE TABLETS [Suspect]
     Active Substance: NORETHINDRONE
     Indication: CONTRACEPTION
     Dosage: UNK
     Route: 065

REACTIONS (2)
  - Syncope [Recovered/Resolved]
  - Off label use [Unknown]
